FAERS Safety Report 10611356 (Version 1)
Quarter: 2014Q4

REPORT INFORMATION
  Report Type: Spontaneous
  Country: TN (occurrence: None)
  Receive Date: 20141124
  Receipt Date: 20141124
  Transmission Date: 20150529
  Serious: Yes (Hospitalization)
  Sender: FDA-Public Use
  Company Number: TN-ZYDUS-005640

PATIENT
  Age: 27 Year

DRUGS (1)
  1. RISPERIDONE (RISPERIDONE) [Suspect]
     Active Substance: RISPERIDONE
     Indication: PSYCHOTIC DISORDER
     Dosage: 1.0 DAYS

REACTIONS (1)
  - Deep vein thrombosis [None]
